FAERS Safety Report 5325446-9 (Version None)
Quarter: 2007Q2

REPORT INFORMATION
  Report Type: 
  Country: None (occurrence: None)
  Receive Date: 20070509
  Receipt Date: 20070425
  Transmission Date: 20071010
  Serious: Yes (Hospitalization)
  Sender: FDA-Public Use
  Company Number: 2007PV032840

PATIENT
  Age: 71 Year
  Sex: Male
  Weight: 92.5338 kg

DRUGS (28)
  1. SYMLIN [Suspect]
     Indication: DIABETES MELLITUS NON-INSULIN-DEPENDENT
     Dosage: 120 MCG; SC
     Route: 058
     Dates: start: 20070101
  2. AMIODARONE HCL [Suspect]
     Indication: DRUG USE FOR UNKNOWN INDICATION
     Dosage: 200 MG; QD; PO
     Route: 048
  3. LANOXIN [Suspect]
     Indication: DRUG USE FOR UNKNOWN INDICATION
     Dosage: 0.125 MG; QD; PO
     Route: 048
  4. DEMADEX [Suspect]
     Indication: DIURETIC THERAPY
     Dosage: 20 MG; QD; PO
     Route: 048
  5. ALLOPURINOL [Suspect]
     Indication: DRUG USE FOR UNKNOWN INDICATION
     Dosage: 300 MG; QD; PO
     Route: 048
  6. ASPIRIN [Concomitant]
  7. ATORVASTATIN [Concomitant]
  8. CLOPIDOGREL [Concomitant]
  9. ENOXAPARIN SODIUM [Concomitant]
  10. NOVOLOG [Concomitant]
  11. DOCUSATE SODIUM [Concomitant]
  12. INSULIN [Suspect]
  13. SYNTHROID [Concomitant]
  14. PANTOPRAZOLE SODIUM [Concomitant]
  15. POLYETHYLENE GLYCOL 3 [Concomitant]
  16. K-DUR 10 [Concomitant]
  17. SENNA [Concomitant]
  18. TAMSULOSIN HCL [Concomitant]
  19. DETROSE 50% WATER [Concomitant]
  20. GLUCAGON [Concomitant]
  21. ZETIA [Concomitant]
  22. FISH OIL [Concomitant]
  23. LANTUS [Concomitant]
  24. PLAVIX [Concomitant]
  25. ISOSORBIDE [Concomitant]
  26. COREG [Concomitant]
  27. LIPITOR [Concomitant]
  28. PROTONIX [Concomitant]

REACTIONS (16)
  - ANOREXIA [None]
  - ATRIAL FLUTTER [None]
  - CELLULITIS [None]
  - CONSTIPATION [None]
  - DISEASE PROGRESSION [None]
  - DIZZINESS POSTURAL [None]
  - DRUG DISPENSING ERROR [None]
  - HYPERKALAEMIA [None]
  - INCORRECT DOSE ADMINISTERED [None]
  - ISCHAEMIC CARDIOMYOPATHY [None]
  - MEDICATION ERROR [None]
  - NAUSEA [None]
  - OVERDOSE [None]
  - URINE OUTPUT DECREASED [None]
  - VOMITING [None]
  - WEIGHT DECREASED [None]
